FAERS Safety Report 8922724 (Version 1)
Quarter: 2012Q4

REPORT INFORMATION
  Report Type: Report from Study
  Country: US (occurrence: US)
  Receive Date: 20121123
  Receipt Date: 20121123
  Transmission Date: 20130627
  Serious: Yes (Hospitalization)
  Sender: FDA-Public Use
  Company Number: US-ROCHE-1158376

PATIENT
  Age: 60 Year

DRUGS (6)
  1. RITUXIMAB [Suspect]
     Indication: PRODUCT USED FOR UNKNOWN INDICATION
     Route: 050
     Dates: start: 20100830
  2. VINCRISTINE [Concomitant]
     Route: 065
     Dates: start: 20100830
  3. CYTOXAN [Concomitant]
     Route: 065
     Dates: start: 20100818
  4. MESNA [Concomitant]
  5. ADRIAMYCIN [Concomitant]
     Route: 065
     Dates: start: 20100818
  6. DEXAMETHASONE [Concomitant]
     Route: 065
     Dates: start: 20100818

REACTIONS (2)
  - Abdominal pain [Unknown]
  - Bowel movement irregularity [Unknown]
